FAERS Safety Report 9707243 (Version 1)
Quarter: 2013Q4

REPORT INFORMATION
  Report Type: Spontaneous
  Country: US (occurrence: US)
  Receive Date: 20131125
  Receipt Date: 20131125
  Transmission Date: 20140711
  Serious: Yes (Hospitalization)
  Sender: FDA-Public Use
  Company Number: US-TARO-2013P1021188

PATIENT
  Age: 73 Year
  Sex: Male
  Weight: 86.18 kg

DRUGS (31)
  1. WARFARIN SODIUM [Suspect]
     Indication: PROPHYLAXIS
     Route: 048
     Dates: start: 20130730, end: 20130922
  2. VEGF TRAP-EYE [Suspect]
     Indication: DIABETIC RETINAL OEDEMA
     Dates: start: 20111031
  3. OMEPRAZOLE [Concomitant]
     Indication: GASTROOESOPHAGEAL REFLUX DISEASE
     Route: 048
     Dates: start: 2004
  4. SYNTHROID [Concomitant]
     Indication: HYPOTHYROIDISM
     Route: 048
     Dates: start: 2008
  5. MULTIVITAMIN [Concomitant]
     Indication: SUPPLEMENTATION THERAPY
     Route: 048
     Dates: start: 1995
  6. KLOR-CON [Concomitant]
     Indication: HYPOKALAEMIC SYNDROME
     Route: 048
     Dates: start: 2007
  7. METOPROLOL TARTRATE [Concomitant]
     Indication: CARDIOVASCULAR EVENT PROPHYLAXIS
     Route: 048
     Dates: start: 20110919, end: 20130922
  8. FISH OIL [Concomitant]
     Indication: SUPPLEMENTATION THERAPY
     Route: 048
     Dates: start: 1995
  9. CALCIUM [Concomitant]
     Indication: SUPPLEMENTATION THERAPY
     Route: 048
     Dates: start: 1995
  10. VITAMIN B1 [Concomitant]
     Route: 048
     Dates: start: 1989
  11. FOLIC ACID [Concomitant]
     Indication: SUPPLEMENTATION THERAPY
     Route: 048
     Dates: start: 1989
  12. HUMALOG [Concomitant]
     Indication: TYPE 2 DIABETES MELLITUS
     Dates: start: 1969
  13. TAMSULOSIN [Concomitant]
     Indication: BENIGN PROSTATIC HYPERPLASIA
     Route: 048
     Dates: start: 2010
  14. DOXYCYCLINE [Concomitant]
     Indication: INFECTION
     Route: 048
     Dates: start: 2010
  15. TRAMADOL HCL [Concomitant]
     Indication: RESTLESS LEGS SYNDROME
     Route: 048
     Dates: start: 2010
  16. PULMICORT [Concomitant]
     Route: 055
     Dates: start: 20111102
  17. NASONEX [Concomitant]
     Indication: PROPHYLAXIS
     Route: 045
     Dates: start: 20111102
  18. SYMBICORT [Concomitant]
     Indication: PROPHYLAXIS
     Route: 055
     Dates: start: 20120216
  19. VITAMIN D (ERGOCALCIFEROL) [Concomitant]
     Indication: SUPPLEMENTATION THERAPY
     Route: 048
     Dates: start: 201202
  20. METHADONE HYDROCHLORIDE [Concomitant]
     Indication: PAIN IN EXTREMITY
     Route: 048
     Dates: start: 20120118
  21. ROPINIROLE HYDROCHLORIDE [Concomitant]
     Indication: RESTLESS LEGS SYNDROME
     Route: 048
     Dates: start: 20121030
  22. TORSEMIDE [Concomitant]
     Indication: OEDEMA PERIPHERAL
     Route: 048
     Dates: start: 20130507
  23. METOLAZONE [Concomitant]
     Indication: OEDEMA PERIPHERAL
     Route: 048
     Dates: start: 20130507, end: 20130922
  24. LYRICA [Concomitant]
     Indication: NEUROPATHY PERIPHERAL
     Route: 048
     Dates: start: 20130716
  25. LIDOCAINE [Concomitant]
     Indication: ORAL FUNGAL INFECTION
     Route: 058
     Dates: start: 20130822, end: 20130921
  26. LIDOCAINE [Concomitant]
     Indication: STOMATITIS
     Route: 058
     Dates: start: 20130822, end: 20130921
  27. SILADRYL [Concomitant]
     Indication: PROPHYLAXIS
     Dates: start: 20130822, end: 20130901
  28. MAALOX [Concomitant]
     Indication: STOMATITIS
     Route: 061
     Dates: start: 20130822, end: 20130901
  29. ASPIRIN [Concomitant]
     Indication: CARDIOVASCULAR EVENT PROPHYLAXIS
     Route: 048
     Dates: start: 20130127
  30. VOLTAREN [Concomitant]
     Indication: CARDIOVASCULAR EVENT PROPHYLAXIS
     Route: 062
     Dates: start: 20130910, end: 20130914
  31. POTASSIUM CHLORIDE [Concomitant]
     Indication: HYPOKALAEMIC SYNDROME
     Route: 048
     Dates: start: 20130422

REACTIONS (3)
  - Anaemia [Recovered/Resolved]
  - Gastrointestinal haemorrhage [Recovered/Resolved]
  - Coagulopathy [Recovered/Resolved]
